FAERS Safety Report 4698826-2 (Version None)
Quarter: 2005Q2

REPORT INFORMATION
  Report Type: 
  Country: None (occurrence: None)
  Receive Date: 20050623
  Receipt Date: 20050610
  Transmission Date: 20051028
  Serious: Yes (Other)
  Sender: FDA-Public Use
  Company Number: 2005086856

PATIENT
  Sex: Male

DRUGS (1)
  1. DRAMAMINE [Suspect]
     Indication: INTENTIONAL MISUSE
     Dosage: 18 TABLETS, THEN 19 TABLETS, ORAL
     Route: 048
     Dates: start: 20050101, end: 20050609

REACTIONS (2)
  - INTENTIONAL MISUSE [None]
  - OVERDOSE [None]
